FAERS Safety Report 6422496-6 (Version None)
Quarter: 2009Q4

REPORT INFORMATION
  Report Type: 
  Country: None (occurrence: None)
  Receive Date: 20091030
  Receipt Date: 20091022
  Transmission Date: 20100525
  Serious: Yes (Hospitalization)
  Sender: FDA-Public Use
  Company Number: JP-ABBOTT-09P-087-0600619-00

PATIENT
  Age: 72 Year
  Sex: Male

DRUGS (15)
  1. LEUPROLIDE ACETATE [Suspect]
     Indication: PROSTATE CANCER STAGE IV
     Route: 058
     Dates: start: 20080723, end: 20090422
  2. LEUPROLIDE ACETATE [Suspect]
     Dates: start: 20050126, end: 20080625
  3. ETHINYL ESTRADIOL [Suspect]
     Indication: PROSTATE CANCER STAGE IV
     Route: 048
     Dates: start: 20090422, end: 20090501
  4. ETHINYL ESTRADIOL [Suspect]
     Route: 048
     Dates: start: 20090603
  5. FLUTAMIDE [Concomitant]
     Indication: PROSTATE CANCER STAGE IV
     Route: 048
     Dates: end: 20080819
  6. FLUTAMIDE [Concomitant]
     Dates: start: 20080820, end: 20090217
  7. FLUTAMIDE [Concomitant]
     Route: 048
     Dates: start: 20090218
  8. LOSARTAN POTASSIUM AND HYDROCHLOROTHIAZIDE [Concomitant]
     Indication: HYPERTENSION
     Route: 048
  9. ZYLORIC [Concomitant]
     Indication: HYPERURICAEMIA
     Route: 048
  10. WARFARIN SODIUM [Concomitant]
     Indication: EMBOLIC STROKE
     Route: 048
  11. DIART [Concomitant]
     Indication: HYPERTENSION
     Route: 048
  12. AMARYL [Concomitant]
     Indication: DIABETES MELLITUS
     Route: 048
  13. ADALAT CC [Concomitant]
     Indication: HYPERTENSION
     Route: 048
  14. DIGITOXIN INJ [Concomitant]
     Indication: ATRIAL FIBRILLATION
     Route: 048
  15. KETOPROFEN [Concomitant]
     Indication: DRUG USE FOR UNKNOWN INDICATION
     Route: 062
     Dates: start: 20090511

REACTIONS (4)
  - DIARRHOEA [None]
  - EMBOLIC STROKE [None]
  - GASTRITIS [None]
  - INSOMNIA [None]
